FAERS Safety Report 23918077 (Version 2)
Quarter: 2024Q2

REPORT INFORMATION
  Report Type: Spontaneous
  Country: AT (occurrence: AT)
  Receive Date: 20240530
  Receipt Date: 20240614
  Transmission Date: 20240716
  Serious: Yes (Hospitalization)
  Sender: FDA-Public Use
  Company Number: AT-BoehringerIngelheim-2024-BI-029965

PATIENT
  Age: 75 Year
  Sex: Female

DRUGS (3)
  1. EMPAGLIFLOZIN [Suspect]
     Active Substance: EMPAGLIFLOZIN
     Indication: Nephropathy
  2. EMPAGLIFLOZIN [Suspect]
     Active Substance: EMPAGLIFLOZIN
     Indication: Chronic kidney disease
  3. Insulin therapy [Concomitant]
     Indication: Product used for unknown indication

REACTIONS (10)
  - Metabolic acidosis [Unknown]
  - Hypertension [Unknown]
  - Sepsis [Unknown]
  - Vomiting [Unknown]
  - Hypovolaemia [Unknown]
  - Renal failure [Unknown]
  - Gastroenteritis [Unknown]
  - Hypovolaemic shock [Unknown]
  - Atrial fibrillation [Unknown]
  - Normochromic normocytic anaemia [Unknown]

NARRATIVE: CASE EVENT DATE: 20240507
